FAERS Safety Report 7405301-0 (Version None)
Quarter: 2011Q2

REPORT INFORMATION
  Report Type: 
  Country: None (occurrence: None)
  Receive Date: 20110411
  Receipt Date: 20110331
  Transmission Date: 20111010
  Serious: Yes (Other)
  Sender: FDA-Public Use
  Company Number: US-AMGEN-USASP2011017432

PATIENT
  Age: 34 Year
  Sex: Female

DRUGS (2)
  1. ENBREL [Suspect]
     Indication: PSORIATIC ARTHROPATHY
  2. ENBREL [Suspect]
     Indication: PSORIASIS
     Dosage: 50 MG, 2 TIMES/WK
     Dates: start: 20040129, end: 20100901

REACTIONS (10)
  - BLOOD GLUCOSE FLUCTUATION [None]
  - PSORIASIS [None]
  - DIABETES MELLITUS [None]
  - BURNS THIRD DEGREE [None]
  - THERAPEUTIC RESPONSE DECREASED [None]
  - NEUROPATHY PERIPHERAL [None]
  - BURNS SECOND DEGREE [None]
  - INSOMNIA [None]
  - SKIN INJURY [None]
  - INJECTION SITE HAEMATOMA [None]
